FAERS Safety Report 8437536-2 (Version None)
Quarter: 2012Q2

REPORT INFORMATION
  Report Type: 
  Country: None (occurrence: None)
  Receive Date: 20120614
  Receipt Date: 20120417
  Transmission Date: 20120825
  Serious: No
  Sender: FDA-Public Use
  Company Number: US-AMGEN-USASP2011029673

PATIENT
  Age: 92 Year
  Sex: Female

DRUGS (3)
  1. ANTIHYPERTENSIVES [Concomitant]
     Dosage: UNK
     Route: 048
  2. PROLIA [Suspect]
     Indication: OSTEOPOROSIS POSTMENOPAUSAL
     Dosage: UNK UNK, Q6MO
     Route: 058
  3. PROLIA [Suspect]
     Dosage: UNK UNK, Q6MO

REACTIONS (8)
  - PAIN [None]
  - ERUCTATION [None]
  - HEADACHE [None]
  - MALAISE [None]
  - ABDOMINAL DISCOMFORT [None]
  - ABDOMINAL PAIN UPPER [None]
  - MUSCULOSKELETAL CHEST PAIN [None]
  - FLATULENCE [None]
